FAERS Safety Report 9097883 (Version 3)
Quarter: 2013Q3

REPORT INFORMATION
  Report Type: Report from Study
  Country: JP (occurrence: JP)
  Receive Date: 20130212
  Receipt Date: 20130830
  Transmission Date: 20140515
  Serious: Yes (Hospitalization)
  Sender: FDA-Public Use
  Company Number: JP-JNJFOC-20130204757

PATIENT
  Age: 76 Year
  Sex: Male
  Weight: 69 kg

DRUGS (20)
  1. SIMPONI [Suspect]
     Indication: RHEUMATOID ARTHRITIS
     Route: 058
     Dates: start: 20120719, end: 20120719
  2. SIMPONI [Suspect]
     Indication: RHEUMATOID ARTHRITIS
     Route: 058
     Dates: start: 20121011, end: 20121011
  3. SIMPONI [Suspect]
     Indication: RHEUMATOID ARTHRITIS
     Route: 058
     Dates: start: 20121108
  4. SIMPONI [Suspect]
     Indication: RHEUMATOID ARTHRITIS
     Route: 058
     Dates: start: 20120816, end: 20120816
  5. SIMPONI [Suspect]
     Indication: RHEUMATOID ARTHRITIS
     Route: 058
     Dates: start: 20120913, end: 20120913
  6. SIMPONI [Suspect]
     Indication: RHEUMATOID ARTHRITIS
     Route: 058
     Dates: start: 20120621, end: 20120621
  7. RHEUMATREX [Suspect]
     Indication: RHEUMATOID ARTHRITIS
     Route: 048
  8. PREDOHAN [Concomitant]
     Indication: RHEUMATOID ARTHRITIS
     Route: 048
     Dates: start: 20120621, end: 20120816
  9. PREDOHAN [Concomitant]
     Indication: RHEUMATOID ARTHRITIS
     Route: 048
     Dates: start: 20120913
  10. PREDNISONE [Concomitant]
     Indication: RHEUMATOID ARTHRITIS
     Route: 048
     Dates: start: 20120816, end: 20120903
  11. PREDNISONE [Concomitant]
     Indication: RHEUMATOID ARTHRITIS
     Route: 048
     Dates: start: 20120621, end: 20120816
  12. PREDNISONE [Concomitant]
     Indication: RHEUMATOID ARTHRITIS
     Route: 048
     Dates: start: 20120913, end: 20121011
  13. PREDNISONE [Concomitant]
     Indication: RHEUMATOID ARTHRITIS
     Route: 048
     Dates: start: 20120913
  14. PREDNISONE [Concomitant]
     Indication: RHEUMATOID ARTHRITIS
     Route: 048
     Dates: end: 20120419
  15. FAMOTIDINE [Concomitant]
     Indication: PROPHYLAXIS
     Route: 048
  16. MAINTATE [Concomitant]
     Indication: CARDIAC FAILURE CONGESTIVE
     Route: 065
  17. MEVALOTIN [Concomitant]
     Indication: HYPERLIPIDAEMIA
     Route: 065
  18. EPADEL S [Concomitant]
     Indication: HYPERLIPIDAEMIA
     Route: 065
  19. XYZAL [Concomitant]
     Indication: PROPHYLAXIS
     Route: 065
  20. BENET [Concomitant]
     Indication: OSTEOPOROSIS
     Route: 065

REACTIONS (1)
  - Feeling abnormal [Recovered/Resolved]
